FAERS Safety Report 8776435 (Version 1)
Quarter: 2012Q4

REPORT INFORMATION
  Report Type: 
  Country: CN (occurrence: CN)
  Receive Date: 20120910
  Receipt Date: 20120910
  Transmission Date: 20130627
  Serious: Yes (Other)
  Sender: FDA-Public Use
  Company Number: CN-BAYER-2012-093047

PATIENT
  Age: 80 Year
  Sex: Female

DRUGS (2)
  1. BAYASPIRIN [Suspect]
     Dosage: 1 DF, QD
     Route: 048
     Dates: start: 2011
  2. GINKGO [Concomitant]

REACTIONS (2)
  - Abdominal discomfort [Recovering/Resolving]
  - Hypoacusis [None]
